FAERS Safety Report 6538359-1 (Version None)
Quarter: 2010Q1

REPORT INFORMATION
  Report Type: 
  Country: None (occurrence: None)
  Receive Date: 20100111
  Receipt Date: 20100106
  Transmission Date: 20100710
  Serious: Yes (Hospitalization)
  Sender: FDA-Public Use
  Company Number: SPV1-2009-02502

PATIENT
  Age: 52 Year
  Sex: Male

DRUGS (16)
  1. FOSRENOL [Suspect]
     Indication: HYPERPHOSPHATAEMIA
     Dosage: ORAL
     Route: 048
     Dates: start: 20090429, end: 20090706
  2. ROCALTROL [Concomitant]
  3. CINACALCET HYDROCHLORIDE (CINACALCET HYDROCHLORIDE) [Concomitant]
  4. LASIX [Concomitant]
  5. ASPIRIN [Concomitant]
  6. ADONA (CARBAZOCHROME SODIUM SULFONATE) [Concomitant]
  7. ALLOPURINOL [Concomitant]
  8. LANSOPRAZOLE [Concomitant]
  9. SIGMART (NICORANDIL) [Concomitant]
  10. PANALDINE (TICLOPIDINE HYDROCHLORIDE) [Concomitant]
  11. DIOVAN [Concomitant]
  12. NOVOLIN (INSULIN) [Concomitant]
  13. CYCLOPHOSPHAMIDE [Concomitant]
  14. SULFAMETHOXAZOLE AND TRIMETHOPRIM [Concomitant]
  15. WARFARIN SODIUM [Concomitant]
  16. CALCIUM CARBONATE [Concomitant]

REACTIONS (4)
  - BLOOD PRESSURE INCREASED [None]
  - CORONARY ARTERY DISEASE [None]
  - NO THERAPEUTIC RESPONSE [None]
  - VENTRICULAR TACHYCARDIA [None]
